FAERS Safety Report 4841749-6 (Version None)
Quarter: 2005Q4

REPORT INFORMATION
  Report Type: 
  Country: None (occurrence: None)
  Receive Date: 20051130
  Receipt Date: 20051116
  Transmission Date: 20060501
  Serious: Yes (Other)
  Sender: FDA-Public Use
  Company Number: ES-JNJFOC-20051105207

PATIENT
  Age: 11 Month
  Sex: Male

DRUGS (4)
  1. TOPAMAX [Suspect]
     Route: 065
  2. TOPAMAX [Suspect]
     Indication: EPILEPSY
     Dosage: INCREASED GRADUALLY FROM 5MG/KG/DAY
     Route: 065
  3. PHENYTOIN [Suspect]
     Indication: EPILEPSY
     Route: 042
  4. CLOZAPINE [Concomitant]
     Indication: EPILEPSY
     Route: 065

REACTIONS (11)
  - ALANINE AMINOTRANSFERASE INCREASED [None]
  - ANHIDROSIS [None]
  - ASPARTATE AMINOTRANSFERASE INCREASED [None]
  - BODY TEMPERATURE INCREASED [None]
  - CEREBRAL ATROPHY [None]
  - CONDITION AGGRAVATED [None]
  - CONVULSION [None]
  - DEPRESSED LEVEL OF CONSCIOUSNESS [None]
  - HYPERCALCIURIA [None]
  - METABOLIC ACIDOSIS [None]
  - SUBDURAL EFFUSION [None]
